FAERS Safety Report 8242646-9 (Version None)
Quarter: 2012Q1

REPORT INFORMATION
  Report Type: 
  Country: None (occurrence: None)
  Receive Date: 20120329
  Receipt Date: 20120322
  Transmission Date: 20120608
  Serious: Yes (Death, Life-Threatening, Hospitalization, Other)
  Sender: FDA-Public Use
  Company Number: TW-BAYER-2011-113698

PATIENT
  Age: 48 Year
  Sex: Male
  Weight: 67.7 kg

DRUGS (10)
  1. LACTULOSE [Concomitant]
     Dosage: 300 ML, TID
     Route: 048
  2. ULTRACET [Concomitant]
     Route: 048
  3. SORAFENIB (RAF KINASE INHIBITOR) [Suspect]
     Dosage: 400 MG, QD
     Route: 048
     Dates: start: 20111115, end: 20111115
  4. OXYBUTYNIN [Concomitant]
     Dosage: 5 MG, UNK
     Route: 048
  5. SORAFENIB (RAF KINASE INHIBITOR) [Suspect]
     Indication: HEPATIC NEOPLASM MALIGNANT
     Dosage: 400 MG, BID
     Route: 048
     Dates: start: 20111005, end: 20111025
  6. METOCLOPRAMIDE [Concomitant]
     Dosage: 10 MG, TID
  7. TAMSULOSIN HCL [Concomitant]
     Dosage: 0.2 MG, UNK
     Route: 048
  8. ESOMEPRAZOLE [Concomitant]
     Dosage: 40 MG, UNK
  9. SORAFENIB (RAF KINASE INHIBITOR) [Suspect]
     Dosage: 400 MG, BID
     Route: 048
     Dates: start: 20111026, end: 20111114
  10. ENTECAVIR [Concomitant]
     Dosage: 0.5 MG, UNK
     Route: 048

REACTIONS (5)
  - HEPATIC FAILURE [None]
  - SEPSIS [None]
  - OESOPHAGEAL VARICES HAEMORRHAGE [None]
  - HEPATIC FUNCTION ABNORMAL [None]
  - CONSTIPATION [None]
